FAERS Safety Report 5803897-3 (Version None)
Quarter: 2008Q3

REPORT INFORMATION
  Report Type: 
  Country: None (occurrence: None)
  Receive Date: 20080703
  Receipt Date: 20080623
  Transmission Date: 20090109
  Serious: Yes (Death, Hospitalization)
  Sender: FDA-Public Use
  Company Number: 2008AP001577

PATIENT
  Age: 45 Year
  Sex: Male

DRUGS (3)
  1. CARBAMAZEPINE [Suspect]
     Indication: EPILEPSY
     Dosage: 140 MG; QD
  2. OXCARBAZEPINE [Suspect]
     Indication: EPILEPSY
     Dosage: 1800 MG; QD
  3. VIGABATRIN (VIGABATRIN) [Suspect]
     Indication: EPILEPSY
     Dosage: 3000 MG; QD

REACTIONS (11)
  - APHASIA [None]
  - BITE [None]
  - COMMUNICATION DISORDER [None]
  - DIPLOPIA [None]
  - GRAND MAL CONVULSION [None]
  - IMPAIRED WORK ABILITY [None]
  - INAPPROPRIATE ANTIDIURETIC HORMONE SECRETION [None]
  - LOSS OF EMPLOYMENT [None]
  - PARTIAL SEIZURES [None]
  - PULMONARY OEDEMA [None]
  - STATUS EPILEPTICUS [None]
